FAERS Safety Report 7941488-9 (Version None)
Quarter: 2011Q4

REPORT INFORMATION
  Report Type: 
  Country: None (occurrence: None)
  Receive Date: 20111128
  Receipt Date: 20111118
  Transmission Date: 20120403
  Serious: Yes (Death)
  Sender: FDA-Public Use
  Company Number: CH-ASTELLAS-2011US007845

PATIENT
  Sex: Female

DRUGS (2)
  1. TARCEVA [Suspect]
     Dosage: 150-100MG
     Route: 048
     Dates: end: 20110817
  2. TARCEVA [Suspect]
     Indication: BRONCHIOLOALVEOLAR CARCINOMA
     Dosage: 150 MG, UID/QD
     Route: 048
     Dates: start: 20100801, end: 20110501

REACTIONS (2)
  - ENCEPHALOPATHY [None]
  - FATIGUE [None]
